FAERS Safety Report 8170949-5 (Version None)
Quarter: 2012Q1

REPORT INFORMATION
  Report Type: 
  Country: None (occurrence: None)
  Receive Date: 20120228
  Receipt Date: 20120224
  Transmission Date: 20120608
  Serious: Yes (Other)
  Sender: FDA-Public Use
  Company Number: US-BAYER-2012-019300

PATIENT
  Age: 55 Year
  Sex: Female

DRUGS (1)
  1. AVELOX [Suspect]
     Indication: INFECTION
     Dosage: 400 MG, QD
     Route: 048
     Dates: start: 20120201

REACTIONS (3)
  - OCULAR ICTERUS [None]
  - ACUTE HEPATIC FAILURE [None]
  - LIVER FUNCTION TEST ABNORMAL [None]
